FAERS Safety Report 4636958-5 (Version None)
Quarter: 2005Q2

REPORT INFORMATION
  Report Type: 
  Country: None (occurrence: None)
  Receive Date: 20050414
  Receipt Date: 20050407
  Transmission Date: 20051028
  Serious: Yes (Hospitalization, Other)
  Sender: FDA-Public Use
  Company Number: FRWYE567207APR05

PATIENT
  Age: 31 Year
  Sex: Female

DRUGS (6)
  1. NORDETTE-21 [Suspect]
     Dosage: 1 TABLET 1X PER 1 DAY; ORAL
     Route: 048
     Dates: end: 20050301
  2. TRETINOIN [Suspect]
     Indication: ACUTE MYELOID LEUKAEMIA
     Dosage: 72 MG 1X PER 1 DAY; ORAL
     Route: 048
     Dates: start: 20050125, end: 20050224
  3. DEXAMETHASONE [Concomitant]
  4. CYTARABINE [Concomitant]
  5. RASBURICASE [Concomitant]
  6. CERUBIDINE [Concomitant]

REACTIONS (1)
  - CYTOLYTIC HEPATITIS [None]
